FAERS Safety Report 9194494 (Version 1)
Quarter: 2013Q1

REPORT INFORMATION
  Report Type: Spontaneous
  Country: US (occurrence: US)
  Receive Date: 20130327
  Receipt Date: 20130327
  Transmission Date: 20140127
  Serious: No
  Sender: FDA-Public Use
  Company Number: US-ALLERGAN-1206631US

PATIENT
  Age: 51 Year
  Sex: Female

DRUGS (2)
  1. LATISSE 0.03% [Suspect]
     Indication: GROWTH OF EYELASHES
     Dosage: 2 GTT, QHS
     Route: 061
     Dates: start: 20120428, end: 20120505
  2. REFRESH TEARS [Concomitant]
     Indication: PRODUCT USED FOR UNKNOWN INDICATION
     Dosage: UNK

REACTIONS (5)
  - Expired drug administered [Unknown]
  - Drug administered at inappropriate site [Unknown]
  - Abnormal sensation in eye [Unknown]
  - Eyelid oedema [Recovered/Resolved]
  - Erythema of eyelid [Unknown]
